FAERS Safety Report 23970653 (Version 1)
Quarter: 2024Q2

REPORT INFORMATION
  Report Type: Spontaneous
  Country: GB (occurrence: GB)
  Receive Date: 20240613
  Receipt Date: 20240613
  Transmission Date: 20240716
  Serious: Yes (Other)
  Sender: FDA-Public Use
  Company Number: None

PATIENT
  Age: 63 Year
  Sex: Female
  Weight: 59 kg

DRUGS (2)
  1. METRONIDAZOLE [Suspect]
     Active Substance: METRONIDAZOLE
     Indication: Vaginal discharge
     Dosage: DOSAGE TEXT: 400MG TWICE A DAY
     Route: 065
     Dates: start: 20240528, end: 20240530
  2. RASILEZ [Concomitant]
     Active Substance: ALISKIREN
     Indication: Hypertension
     Route: 065
     Dates: start: 20231117, end: 20240224

REACTIONS (4)
  - Medication error [Unknown]
  - Burning sensation [Not Recovered/Not Resolved]
  - Tremor [Not Recovered/Not Resolved]
  - Pain [Not Recovered/Not Resolved]

NARRATIVE: CASE EVENT DATE: 20240529
